FAERS Safety Report 7048379-9 (Version None)
Quarter: 2010Q4

REPORT INFORMATION
  Report Type: 
  Country: None (occurrence: None)
  Receive Date: 20101015
  Receipt Date: 20101007
  Transmission Date: 20110411
  Serious: Yes (Other)
  Sender: FDA-Public Use
  Company Number: GT-ABBOTT-10P-069-0677169-00

PATIENT
  Sex: Female

DRUGS (8)
  1. ALUVIA TABLETS 200MG/50MG [Suspect]
     Indication: PROPHYLAXIS
     Dosage: 200/50MG TABLETS TWICE DAILY
     Route: 048
     Dates: start: 20071207
  2. ALUVIA TABLETS 200MG/50MG [Suspect]
     Indication: HUMAN IMMUNODEFICIENCY VIRUS TRANSMISSION
     Dosage: 200/50MG TABLETS TWICE DAILY
  3. LAMIVUDINE + ZIDOVUDINE [Concomitant]
     Indication: HIV INFECTION
     Dosage: 300/150MG TWICE DAILY
     Route: 048
     Dates: start: 20071207
  4. LAMIVUDINE + ZIDOVUDINE [Concomitant]
     Indication: PROPHYLAXIS
  5. LAMIVUDINE + ZIDOVUDINE [Concomitant]
     Indication: HUMAN IMMUNODEFICIENCY VIRUS TRANSMISSION
  6. TRIMETHOPRIM + SULFAMETHOXAZOLE [Concomitant]
     Indication: ANTIFUNGAL PROPHYLAXIS
     Route: 048
     Dates: start: 20070925
  7. FLUCONAZOLE [Concomitant]
     Indication: CANDIDIASIS
     Route: 048
     Dates: start: 20070918, end: 20070925
  8. TINIDAZOLE [Concomitant]
     Indication: DIARRHOEA
     Dosage: SINGLE DOSE
     Route: 048
     Dates: start: 20070925, end: 20070925

REACTIONS (3)
  - ABORTION SPONTANEOUS [None]
  - DRUG EXPOSURE DURING PREGNANCY [None]
  - VAGINAL HAEMORRHAGE [None]
